FAERS Safety Report 17523883 (Version 1)
Quarter: 2020Q1

REPORT INFORMATION
  Report Type: Report from Study
  Country: ES (occurrence: ES)
  Receive Date: 20200310
  Receipt Date: 20200310
  Transmission Date: 20200409
  Serious: Yes (Hospitalization)
  Sender: FDA-Public Use
  Company Number: ES-MYLANLABS-2020M1025566

PATIENT
  Age: 79 Year
  Sex: Male

DRUGS (11)
  1. RIVAROXABAN [Suspect]
     Active Substance: RIVAROXABAN
     Indication: CARDIAC FAILURE
     Dosage: 20 MILLIGRAM, QD
     Dates: start: 20150825
  2. DEFERASIROX. [Concomitant]
     Active Substance: DEFERASIROX
     Dosage: 90 MILLIGRAM
     Dates: start: 20160303
  3. BISOPROLOL [Suspect]
     Active Substance: BISOPROLOL
     Dosage: 1.25 MILLIGRAM
     Dates: start: 20191204, end: 20191217
  4. RIVAROXABAN [Suspect]
     Active Substance: RIVAROXABAN
     Indication: ATRIAL FIBRILLATION
  5. ATORVASTATIN [Concomitant]
     Active Substance: ATORVASTATIN
     Dosage: 20 MILLIGRAM
     Dates: start: 19980801
  6. BISOPROLOL [Suspect]
     Active Substance: BISOPROLOL
     Indication: PRODUCT USED FOR UNKNOWN INDICATION
     Dosage: 2.5 MILLIGRAM
     Dates: start: 19980801
  7. COLCHICINE. [Concomitant]
     Active Substance: COLCHICINE
     Dosage: 0.5 MILLIGRAM
     Dates: start: 20170830
  8. TAMSULOSIN [Concomitant]
     Active Substance: TAMSULOSIN
     Dosage: 0.4 MILLIGRAM
     Dates: start: 20180209
  9. SITAGLIPTIN [Concomitant]
     Active Substance: SITAGLIPTIN
     Dosage: UNK
     Dates: start: 20171001
  10. DUTASTERIDE. [Concomitant]
     Active Substance: DUTASTERIDE
     Dosage: 0.5 MILLIGRAM
     Dates: start: 20180209
  11. PANTOPRAZOLE [Concomitant]
     Active Substance: PANTOPRAZOLE
     Dosage: 20 MILLIGRAM
     Dates: start: 19980801

REACTIONS (2)
  - Respiratory tract infection [Recovered/Resolved]
  - Cardiac failure [Recovered/Resolved]

NARRATIVE: CASE EVENT DATE: 20191114
